FAERS Safety Report 4708109-X (Version None)
Quarter: 2005Q3

REPORT INFORMATION
  Report Type: 
  Country: None (occurrence: None)
  Receive Date: 20050707
  Receipt Date: 20050607
  Transmission Date: 20060218
  Serious: Yes (Death, Life-Threatening, Hospitalization, Disabling)
  Sender: FDA-Public Use
  Company Number: BE-BRISTOL-MYERS SQUIBB COMPANY-12996005

PATIENT
  Age: 55 Year
  Sex: Male
  Weight: 50 kg

DRUGS (12)
  1. CARBOPLATIN [Suspect]
     Indication: MESOTHELIOMA
     Route: 042
     Dates: start: 20050511, end: 20050511
  2. ALIMTA [Suspect]
     Indication: MESOTHELIOMA
     Route: 042
     Dates: start: 20050511, end: 20050511
  3. ZALDIAR [Concomitant]
     Indication: PAIN
     Route: 048
  4. LORAZEPAM [Concomitant]
     Indication: SLEEP DISORDER
     Route: 048
  5. CITALOPRAM [Concomitant]
     Indication: DEPRESSION
     Route: 048
  6. ATROVENT [Concomitant]
     Route: 055
  7. NEXIUM [Concomitant]
     Indication: GASTRIC ULCER
     Route: 048
  8. FOLAVIT [Concomitant]
     Indication: GASTRIC ULCER
     Route: 048
  9. MEDROL [Concomitant]
     Route: 048
  10. FLIXOTIDE [Concomitant]
     Route: 055
  11. DUOVENT [Concomitant]
     Route: 055
  12. FORADIL [Concomitant]
     Route: 055

REACTIONS (5)
  - CAMPYLOBACTER INTESTINAL INFECTION [None]
  - DIARRHOEA [None]
  - ILEITIS [None]
  - MUCOSAL INFLAMMATION [None]
  - SEPTIC SHOCK [None]
